FAERS Safety Report 20861114 (Version 1)
Quarter: 2022Q2

REPORT INFORMATION
  Report Type: Spontaneous
  Country: AU (occurrence: AU)
  Receive Date: 20220523
  Receipt Date: 20220523
  Transmission Date: 20220721
  Serious: Yes (Hospitalization)
  Sender: FDA-Public Use
  Company Number: AU-BRISTOL-MYERS SQUIBB COMPANY-2022-041594

PATIENT
  Age: 89 Year
  Sex: Male

DRUGS (11)
  1. ELIQUIS [Suspect]
     Active Substance: APIXABAN
     Indication: Thrombosis prophylaxis
     Dosage: DOSE : 1 TAB;     FREQ : TWICE A DAY
     Route: 065
  2. ATORVASTATIN [Concomitant]
     Active Substance: ATORVASTATIN
     Dosage: TAKE 1 TABLET AT NIGHT
  3. DESVENLAFAXINE [Concomitant]
     Active Substance: DESVENLAFAXINE
     Indication: Depression
     Dosage: SWALLOW WHOLE 1 TABLET IN THE MORNING
  4. DOXYCYCLINE [Concomitant]
     Active Substance: DOXYCYCLINE
     Indication: Infection
     Dosage: TAKE 1 TABLET TWICE A DAY WITH FOOD FOR 4 DAYS
  5. ESOMEPRAZOLE [Concomitant]
     Active Substance: ESOMEPRAZOLE
     Indication: Gastrooesophageal reflux disease
     Dosage: SWALLOW WHOLE 1 TABLET IN THE MORNING
  6. MAGNESIUM ASPARTATE DIHYDRATE [Concomitant]
     Active Substance: MAGNESIUM ASPARTATE DIHYDRATE
     Dosage: 37.4 MG MAGNESIUM?TAKE 1 TABLET TWICE A DAY WITH FOOD
  7. SOTALOL [Concomitant]
     Active Substance: SOTALOL
     Indication: Heart rate irregular
     Dosage: TAKE ONE AND A HALF TABLETS TWICE A DAY 1 HOUR BEFORE FOOD
  8. METFORMIN HYDROCHLORIDE\VILDAGLIPTIN [Concomitant]
     Active Substance: METFORMIN HYDROCHLORIDE\VILDAGLIPTIN
     Indication: Diabetes mellitus
     Dosage: 50 MG- 1000 MG ?TAKE 1 TABLET TWICE A DAY WITH FOOD
  9. DOCUSATE SODIUM\SENNOSIDES A AND B [Concomitant]
     Active Substance: DOCUSATE SODIUM\SENNOSIDES A AND B
     Indication: Constipation
     Dosage: 50 MG - 8 MG ?TAKE 2 TABLES TWICE A DAY WHEN REQUIRED FOR CONSTIPATION
  10. OLMESARTAN [Concomitant]
     Active Substance: OLMESARTAN
  11. AMOXICILLIN [Concomitant]
     Active Substance: AMOXICILLIN
     Dosage: 2 CAPSULE FOR 4 DAYS

REACTIONS (1)
  - COVID-19 [Unknown]
